FAERS Safety Report 6250444-0 (Version None)
Quarter: 2009Q2

REPORT INFORMATION
  Report Type: 
  Country: None (occurrence: None)
  Receive Date: 20090630
  Receipt Date: 20090618
  Transmission Date: 20091009
  Serious: Yes (Other)
  Sender: FDA-Public Use
  Company Number: PHHY2009FR25687

PATIENT
  Sex: Male

DRUGS (1)
  1. FORADIL [Suspect]
     Indication: ASTHMA
     Dosage: 12 UG, 2 TO 3 TIMES/DAY

REACTIONS (2)
  - RENAL PAIN [None]
  - URINARY TRACT DISORDER [None]
